FAERS Safety Report 5422126-6 (Version None)
Quarter: 2007Q3

REPORT INFORMATION
  Report Type: 
  Country: None (occurrence: None)
  Receive Date: 20070822
  Receipt Date: 20070810
  Transmission Date: 20080115
  Serious: Yes (Other)
  Sender: FDA-Public Use
  Company Number: US-AMGEN-US237019

PATIENT
  Sex: Female
  Weight: 93.5 kg

DRUGS (13)
  1. ARANESP [Suspect]
     Indication: RENAL FAILURE CHRONIC
     Dates: start: 20060821, end: 20070705
  2. VYTORIN [Concomitant]
  3. ABILIFY [Concomitant]
  4. AVANDIA [Concomitant]
     Dates: end: 20070701
  5. FLONASE [Concomitant]
     Route: 045
  6. ZYRTEC [Concomitant]
  7. TRIAMTERENE AND HYDROCHLOROTHIAZIDE [Concomitant]
  8. GLIPIZIDE [Concomitant]
  9. LISINOPRIL [Concomitant]
     Dates: start: 20050601
  10. PEPCID [Concomitant]
  11. ZOCOR [Concomitant]
  12. ZETIA [Concomitant]
  13. PROZAC [Concomitant]
     Dates: start: 20050601

REACTIONS (4)
  - BIPOLAR DISORDER [None]
  - DYSFUNCTIONAL UTERINE BLEEDING [None]
  - HAEMOGLOBIN DECREASED [None]
  - UTERINE LEIOMYOMA [None]
